FAERS Safety Report 8189190-5 (Version None)
Quarter: 2012Q1

REPORT INFORMATION
  Report Type: 
  Country: None (occurrence: None)
  Receive Date: 20120306
  Receipt Date: 20120306
  Transmission Date: 20120608
  Serious: Yes (Disabling)
  Sender: FDA-Public Use
  Company Number: None

PATIENT
  Sex: Male
  Weight: 78.0187 kg

DRUGS (1)
  1. LEVAQUIN [Suspect]
     Indication: PROSTATITIS
     Dosage: 750 MG 1 A DAY
     Dates: start: 20110210

REACTIONS (3)
  - MUSCULOSKELETAL PAIN [None]
  - PAIN [None]
  - MOVEMENT DISORDER [None]
